FAERS Safety Report 12234422 (Version 1)
Quarter: 2016Q2

REPORT INFORMATION
  Report Type: Spontaneous
  Country: GB (occurrence: GB)
  Receive Date: 20160404
  Receipt Date: 20160404
  Transmission Date: 20160815
  Serious: Yes (Disabling)
  Sender: FDA-Public Use
  Company Number: GB-B. BRAUN MEDICAL INC.-1050179

PATIENT
  Age: 11 Year
  Sex: Female

DRUGS (3)
  1. LIDOCAINE HYDROCHLORIDE AND DEXTROSE [Suspect]
     Active Substance: LIDOCAINE HYDROCHLORIDE\LIDOCAINE HYDROCHLORIDE ANHYDROUS
     Route: 058
     Dates: start: 20160209, end: 20160209
  2. BUPIVACAINE. [Suspect]
     Active Substance: BUPIVACAINE
     Route: 008
     Dates: start: 20160209, end: 20160209
  3. KENALOG [Suspect]
     Active Substance: TRIAMCINOLONE ACETONIDE
     Route: 008
     Dates: start: 20160209, end: 20160209

REACTIONS (2)
  - Vision blurred [None]
  - Swelling face [None]
